FAERS Safety Report 5491476-X (Version None)
Quarter: 2007Q4

REPORT INFORMATION
  Report Type: 
  Country: None (occurrence: None)
  Receive Date: 20071022
  Receipt Date: 20071012
  Transmission Date: 20080405
  Serious: Yes (Hospitalization, Disabling)
  Sender: FDA-Public Use
  Company Number: PHNR2007AU00538

PATIENT
  Age: 62 Year
  Sex: Male

DRUGS (11)
  1. ZOMETA [Suspect]
     Dosage: 4MG EVERY 3 MONTHS
     Dates: end: 20061115
  2. MELPHALAN [Concomitant]
     Indication: MULTIPLE MYELOMA
     Dates: start: 19980301
  3. PREDNISOLONE [Concomitant]
     Indication: MULTIPLE MYELOMA
     Dosage: 25MG MANE
     Dates: start: 20030101
  4. MORPHINE [Concomitant]
  5. GABAPENTIN [Concomitant]
  6. ASPIRIN [Concomitant]
  7. LIPITOR [Concomitant]
  8. VALTREX [Concomitant]
  9. MOBIC [Concomitant]
  10. VINCRISTINE + ADRIAMYCIN + DEXAMETHASONE [Concomitant]
  11. AREDIA [Suspect]
     Dosage: 90MG
     Dates: start: 19980101

REACTIONS (7)
  - BONE DISORDER [None]
  - IMPAIRED HEALING [None]
  - OEDEMA MOUTH [None]
  - OSTEONECROSIS [None]
  - PAIN IN JAW [None]
  - SOFT TISSUE INFECTION [None]
  - SURGERY [None]
